FAERS Safety Report 5427714-9 (Version None)
Quarter: 2007Q3

REPORT INFORMATION
  Report Type: 
  Country: None (occurrence: None)
  Receive Date: 20070823
  Receipt Date: 20070808
  Transmission Date: 20080115
  Serious: Yes (Hospitalization)
  Sender: FDA-Public Use
  Company Number: 230026M03FRA

PATIENT
  Age: 22 Year
  Sex: Female

DRUGS (1)
  1. REBIF [Suspect]
     Indication: MULTIPLE SCLEROSIS
     Dosage: 44 MCG, 3 IN 1 WEEKS, SUBCUTANEOUS; SUBCUTANEOUS
     Route: 058
     Dates: start: 20010501

REACTIONS (3)
  - DRUG TOXICITY [None]
  - INJECTION SITE REACTION [None]
  - PANNICULITIS [None]
